FAERS Safety Report 20425540 (Version 1)
Quarter: 2022Q1

REPORT INFORMATION
  Report Type: Report from Study
  Country: US (occurrence: US)
  Receive Date: 20220204
  Receipt Date: 20220204
  Transmission Date: 20220423
  Serious: No
  Sender: FDA-Public Use
  Company Number: US-EXELIXIS-CABO-21038791

PATIENT
  Sex: Male

DRUGS (17)
  1. CABOMETYX [Suspect]
     Active Substance: CABOZANTINIB S-MALATE
     Indication: Renal cancer
     Dosage: 60 MG, QD
     Route: 048
     Dates: start: 20210224
  2. LISINOPRIL [Concomitant]
     Active Substance: LISINOPRIL
  3. METFORMIN HYDROCHLORIDE [Concomitant]
     Active Substance: METFORMIN HYDROCHLORIDE
  4. METOPROLOL SUCCINATE [Concomitant]
     Active Substance: METOPROLOL SUCCINATE
  5. VITAMINS [Concomitant]
     Active Substance: VITAMINS
  6. OPCON-A [Concomitant]
     Active Substance: NAPHAZOLINE HYDROCHLORIDE\PHENIRAMINE MALEATE
  7. ONDANSETRON [Concomitant]
     Active Substance: ONDANSETRON
  8. ONETOUCH ULTRA BLUE [Concomitant]
  9. OXYMETAZOLINE HYDROCHLORIDE [Concomitant]
     Active Substance: OXYMETAZOLINE HYDROCHLORIDE
  10. MIRALAX [Concomitant]
     Active Substance: POLYETHYLENE GLYCOL 3350
  11. PROCHLORPERAZINE MALEATE [Concomitant]
     Active Substance: PROCHLORPERAZINE MALEATE
  12. ACETAMINOPHEN [Concomitant]
     Active Substance: ACETAMINOPHEN
  13. ALPRAZOLAM [Concomitant]
     Active Substance: ALPRAZOLAM
  14. ATORVASTATIN CALCIUM [Concomitant]
     Active Substance: ATORVASTATIN CALCIUM
  15. ERYTHROMYCIN [Concomitant]
     Active Substance: ERYTHROMYCIN
  16. D3 10,000IU ULTRA STRENGTH [Concomitant]
  17. GLIPIZIDE [Concomitant]
     Active Substance: GLIPIZIDE

REACTIONS (5)
  - Diarrhoea [Unknown]
  - Headache [Unknown]
  - Decreased appetite [Unknown]
  - Fatigue [Unknown]
  - Product packaging quantity issue [Unknown]
